FAERS Safety Report 10868777 (Version 1)
Quarter: 2015Q1

REPORT INFORMATION
  Report Type: Spontaneous
  Country: FR (occurrence: FR)
  Receive Date: 20150225
  Receipt Date: 20150225
  Transmission Date: 20150721
  Serious: Yes (Other)
  Sender: FDA-Public Use
  Company Number: FR-PFIZER INC-2015064782

PATIENT
  Age: 44 Year
  Sex: Female

DRUGS (5)
  1. INIPOMP [Concomitant]
     Active Substance: PANTOPRAZOLE SODIUM
     Dosage: 40 MG, UNK
     Route: 048
     Dates: start: 20141201
  2. TAVANIC [Concomitant]
     Active Substance: LEVOFLOXACIN
     Dosage: UNK
     Route: 042
     Dates: start: 20141127
  3. LYRICA [Suspect]
     Active Substance: PREGABALIN
     Indication: ABDOMINAL PAIN
     Dosage: 75 MG, 2X/DAY
     Dates: start: 20141203, end: 20141203
  4. LYRICA [Suspect]
     Active Substance: PREGABALIN
     Indication: BACK PAIN
     Dosage: 150 MG, IN THE MORNING
     Dates: start: 20141204, end: 20141204
  5. ADVIL [Concomitant]
     Active Substance: IBUPROFEN
     Route: 048

REACTIONS (8)
  - Movement disorder [Unknown]
  - Headache [Recovered/Resolved]
  - Epilepsy [Recovered/Resolved]
  - Nausea [Recovered/Resolved]
  - Malaise [Unknown]
  - Somnolence [Unknown]
  - Accidental overdose [Recovered/Resolved]
  - Product use issue [Unknown]

NARRATIVE: CASE EVENT DATE: 20141203
